FAERS Safety Report 6619081-X (Version None)
Quarter: 2010Q1

REPORT INFORMATION
  Report Type: 
  Country: None (occurrence: None)
  Receive Date: 20100308
  Receipt Date: 20100303
  Transmission Date: 20100710
  Serious: Yes (Other)
  Sender: FDA-Public Use
  Company Number: CH-BAYER-200918308GPV

PATIENT
  Age: 43 Year
  Sex: Female

DRUGS (6)
  1. CIPROXIN [Suspect]
     Indication: DRUG USE FOR UNKNOWN INDICATION
     Route: 048
     Dates: start: 20081201, end: 20081201
  2. AZATHIOPRINE [Suspect]
     Indication: CROHN'S DISEASE
     Dosage: UNIT DOSE: 100 MG
     Route: 048
     Dates: start: 20000101
  3. FLUCTINE [Suspect]
     Indication: DRUG USE FOR UNKNOWN INDICATION
     Dosage: UNIT DOSE: 20 MG
     Route: 048
     Dates: start: 20081201, end: 20081201
  4. ACCUPAQUE [Suspect]
     Indication: COMPUTERISED TOMOGRAM ABDOMEN
     Route: 040
     Dates: start: 20081223, end: 20081223
  5. FLAGYL [Concomitant]
     Indication: DRUG USE FOR UNKNOWN INDICATION
     Route: 048
     Dates: start: 20081201, end: 20081201
  6. ROCEPHIN [Concomitant]
     Indication: DRUG USE FOR UNKNOWN INDICATION
     Route: 065
     Dates: start: 20081201, end: 20081201

REACTIONS (3)
  - NO ADVERSE EVENT [None]
  - PREMATURE BABY [None]
  - PREMATURE SEPARATION OF PLACENTA [None]
